FAERS Safety Report 6563150-X (Version None)
Quarter: 2010Q1

REPORT INFORMATION
  Report Type: 
  Country: None (occurrence: None)
  Receive Date: 20100130
  Receipt Date: 20091210
  Transmission Date: 20100710
  Serious: No
  Sender: FDA-Public Use
  Company Number: US-ABBOTT-09P-163-0613638-00

PATIENT
  Sex: Female
  Weight: 79.45 kg

DRUGS (5)
  1. HUMIRA [Suspect]
     Indication: RHEUMATOID ARTHRITIS
     Route: 058
     Dates: start: 20091026
  2. HUMIRA [Suspect]
     Indication: PSORIATIC ARTHROPATHY
  3. HUMIRA [Suspect]
     Indication: OSTEOARTHRITIS
  4. HUMIRA [Suspect]
     Indication: DRUG USE FOR UNKNOWN INDICATION
  5. NON-NARCOTIC PAIN MEDICATION [Concomitant]
     Indication: PAIN
     Dates: start: 20091026

REACTIONS (5)
  - ARTHRALGIA [None]
  - FATIGUE [None]
  - PSORIASIS [None]
  - PSORIATIC ARTHROPATHY [None]
  - RHEUMATOID ARTHRITIS [None]
